FAERS Safety Report 6717349-X (Version None)
Quarter: 2010Q2

REPORT INFORMATION
  Report Type: 
  Country: None (occurrence: None)
  Receive Date: 20100510
  Receipt Date: 20100430
  Transmission Date: 20101027
  Serious: Yes (Hospitalization)
  Sender: FDA-Public Use
  Company Number: US-ABBOTT-10P-163-0625970-00

PATIENT
  Sex: Female
  Weight: 58.112 kg

DRUGS (2)
  1. HUMIRA [Suspect]
     Indication: CROHN'S DISEASE
     Dates: start: 20071005, end: 20071116
  2. HUMIRA [Suspect]

REACTIONS (1)
  - ANAPHYLACTIC SHOCK [None]
